FAERS Safety Report 7900049-8 (Version None)
Quarter: 2011Q4

REPORT INFORMATION
  Report Type: 
  Country: None (occurrence: None)
  Receive Date: 20111108
  Receipt Date: 20111101
  Transmission Date: 20120403
  Serious: Yes (Death)
  Sender: FDA-Public Use
  Company Number: US-BIOGENIDEC-2011BI038840

PATIENT
  Age: 51 Year
  Sex: Male

DRUGS (1)
  1. TYSABRI [Suspect]
     Indication: MULTIPLE SCLEROSIS
     Route: 042
     Dates: start: 20100716, end: 20110512

REACTIONS (7)
  - PNEUMONIA [None]
  - MULTIPLE SCLEROSIS [None]
  - DEPRESSION [None]
  - RESPIRATORY TRACT INFECTION [None]
  - MUSCLE SPASMS [None]
  - URINARY TRACT INFECTION [None]
  - URINARY RETENTION [None]
